FAERS Safety Report 9705553 (Version 2)
Quarter: 2015Q3

REPORT INFORMATION
  Report Type: Spontaneous
  Country: US (occurrence: US)
  Receive Date: 20131122
  Receipt Date: 20150803
  Transmission Date: 20151125
  Serious: No
  Sender: FDA-Public Use
  Company Number: US-GILEAD-2008-0016913

PATIENT
  Age: 66 Year
  Sex: Female

DRUGS (9)
  1. ENALAPRIL [Concomitant]
     Active Substance: ENALAPRIL
  2. REVATIO [Concomitant]
     Active Substance: SILDENAFIL CITRATE
  3. ASPIRIN. [Concomitant]
     Active Substance: ASPIRIN
  4. DIGITEK [Concomitant]
     Active Substance: DIGOXIN
  5. LETAIRIS [Suspect]
     Active Substance: AMBRISENTAN
     Indication: PULMONARY ARTERIAL HYPERTENSION
     Route: 048
     Dates: start: 20080526
  6. VITAMIN C [Concomitant]
     Active Substance: ASCORBIC ACID
  7. FUROSEMIDE. [Concomitant]
     Active Substance: FUROSEMIDE
  8. ALLOPURINOL. [Concomitant]
     Active Substance: ALLOPURINOL
  9. VITAMIN E [Concomitant]
     Active Substance: .ALPHA.-TOCOPHEROL

REACTIONS (1)
  - Peripheral swelling [Not Recovered/Not Resolved]

NARRATIVE: CASE EVENT DATE: 20080602
